FAERS Safety Report 11752866 (Version 2)
Quarter: 2015Q4

REPORT INFORMATION
  Report Type: Spontaneous
  Country: GB (occurrence: GB)
  Receive Date: 20151119
  Receipt Date: 20151126
  Transmission Date: 20160304
  Serious: Yes (Other)
  Sender: FDA-Public Use
  Company Number: GB-BEH-2015055819

PATIENT
  Sex: Female

DRUGS (1)
  1. IVIG [Suspect]
     Active Substance: HUMAN IMMUNOGLOBULIN G
     Indication: MULTIFOCAL MOTOR NEUROPATHY
     Dosage: START DATE: ??-NOV-2011
     Route: 042

REACTIONS (4)
  - Headache [Unknown]
  - Malaise [Unknown]
  - Adverse event [Unknown]
  - Stress [Unknown]
